FAERS Safety Report 14113327 (Version 1)
Quarter: 2017Q4

REPORT INFORMATION
  Report Type: Spontaneous
  Country: US (occurrence: None)
  Receive Date: 20171022
  Receipt Date: 20171022
  Transmission Date: 20180321
  Serious: Yes (Life-Threatening, Hospitalization)
  Sender: FDA-Public Use
  Company Number: None

PATIENT
  Age: 60 Year
  Sex: Male

DRUGS (1)
  1. LITHIUM. [Suspect]
     Active Substance: LITHIUM
     Indication: NEUROLEPTIC MALIGNANT SYNDROME
     Route: 048
     Dates: start: 20170330, end: 20170601

REACTIONS (4)
  - Mental status changes [None]
  - Muscle rigidity [None]
  - Toxicity to various agents [None]
  - Neuroleptic malignant syndrome [None]

NARRATIVE: CASE EVENT DATE: 20170601
